FAERS Safety Report 5030563-7 (Version None)
Quarter: 2006Q2

REPORT INFORMATION
  Report Type: 
  Country: None (occurrence: None)
  Receive Date: 20060615
  Receipt Date: 20060602
  Transmission Date: 20061013
  Serious: Yes (Hospitalization, Other)
  Sender: FDA-Public Use
  Company Number: 2006073478

PATIENT
  Age: 59 Year
  Sex: Male

DRUGS (9)
  1. CELEBREX [Suspect]
     Indication: ILL-DEFINED DISORDER
     Dosage: 400 MG (200 MG, 2 IN 1 D)
  2. VIOXX [Suspect]
     Indication: ILL-DEFINED DISORDER
  3. COREG [Concomitant]
  4. ENALAPRIL MALEATE [Concomitant]
  5. PREVACID [Concomitant]
  6. LORAZEPAM [Concomitant]
  7. BUSPIRONE HCL [Concomitant]
  8. NIASPAN [Concomitant]
  9. ALL OTHER THERAPEUTIC PRODUCTS (ALL OTHER THERAPEUTIC PRODUCTS) [Concomitant]

REACTIONS (5)
  - ANGINA UNSTABLE [None]
  - CARDIOMYOPATHY [None]
  - CORONARY ARTERY STENOSIS [None]
  - EJECTION FRACTION DECREASED [None]
  - THERAPY NON-RESPONDER [None]
